FAERS Safety Report 9888004 (Version 1)
Quarter: 2014Q1

REPORT INFORMATION
  Report Type: Spontaneous
  Country: US (occurrence: None)
  Receive Date: 20140207
  Receipt Date: 20140207
  Transmission Date: 20141002
  Serious: Yes (Hospitalization)
  Sender: FDA-Public Use
  Company Number: None

PATIENT
  Age: 68 Year
  Sex: Male
  Weight: 102.3 kg

DRUGS (2)
  1. PREDNISONE [Suspect]
     Route: 048
     Dates: start: 20131023, end: 20131025
  2. DIAZEPAM [Suspect]
     Route: 048
     Dates: start: 20100114, end: 20131023

REACTIONS (7)
  - Toxicity to various agents [None]
  - Alcohol poisoning [None]
  - Drug withdrawal syndrome [None]
  - Substance-induced psychotic disorder [None]
  - Blood glucose increased [None]
  - Suicidal ideation [None]
  - Homicidal ideation [None]
